FAERS Safety Report 5871418-5 (Version None)
Quarter: 2008Q3

REPORT INFORMATION
  Report Type: 
  Country: None (occurrence: None)
  Receive Date: 20080905
  Receipt Date: 20080827
  Transmission Date: 20090109
  Serious: Yes (Disabling, Other)
  Sender: FDA-Public Use
  Company Number: PHHY2008JP16365

PATIENT
  Sex: Female
  Weight: 50 kg

DRUGS (11)
  1. AREDIA [Suspect]
     Indication: BREAST CANCER
     Dosage: 45 MG, QMO
     Route: 042
     Dates: start: 20040109, end: 20041224
  2. AREDIA [Suspect]
     Dosage: 90 MG, QMO
     Route: 042
     Dates: start: 20050113, end: 20060518
  3. ZOMETA [Suspect]
     Indication: BREAST CANCER
     Dosage: 4 MG, QMO
     Route: 042
     Dates: start: 20060616, end: 20070707
  4. FARMORUBICIN [Concomitant]
     Dosage: UNK
     Dates: start: 20031201, end: 20040601
  5. ENDOXAN [Concomitant]
     Dosage: UNK
     Dates: start: 20031201, end: 20040601
  6. ARIMIDEX [Concomitant]
  7. TAXOTERE [Concomitant]
  8. XELODA [Concomitant]
  9. TS 1 [Concomitant]
  10. GAMMA IRRADIATION [Concomitant]
     Indication: METASTASES TO CENTRAL NERVOUS SYSTEM
     Dosage: UNK
     Dates: start: 20050101, end: 20060501
  11. RADIATION THERAPY [Concomitant]
     Indication: METASTASES TO BONE
     Dosage: UNK
     Dates: start: 20070401

REACTIONS (21)
  - ABSCESS DRAINAGE [None]
  - BETA HAEMOLYTIC STREPTOCOCCAL INFECTION [None]
  - BIOPSY BONE [None]
  - BLOOD ALKALINE PHOSPHATASE INCREASED [None]
  - BONE DISORDER [None]
  - BONE LESION [None]
  - COMPUTERISED TOMOGRAM ABNORMAL [None]
  - GINGIVAL ABSCESS [None]
  - GINGIVAL SWELLING [None]
  - INCISIONAL DRAINAGE [None]
  - MOUTH ULCERATION [None]
  - ORAL SURGERY [None]
  - OSTEOMYELITIS [None]
  - OSTEONECROSIS [None]
  - PAIN [None]
  - PERIODONTITIS [None]
  - RED BLOOD CELL COUNT DECREASED [None]
  - SEQUESTRECTOMY [None]
  - TOOTH EXTRACTION [None]
  - WHITE BLOOD CELL COUNT DECREASED [None]
  - X-RAY DENTAL [None]
